FAERS Safety Report 11374350 (Version 1)
Quarter: 2015Q3

REPORT INFORMATION
  Report Type: Spontaneous
  Country: US (occurrence: None)
  Receive Date: 20150812
  Receipt Date: 20150812
  Transmission Date: 20151125
  Serious: Yes (Other)
  Sender: FDA-Public Use
  Company Number: None

PATIENT
  Sex: Female

DRUGS (1)
  1. COPAXONE [Suspect]
     Active Substance: GLATIRAMER ACETATE
     Dosage: THREE TIMES A WEEK
     Route: 058
     Dates: start: 201507

REACTIONS (6)
  - Throat irritation [None]
  - Asthenia [None]
  - Insomnia [None]
  - Cough [None]
  - Dyspnoea [None]
  - Fatigue [None]
